FAERS Safety Report 6066174-4 (Version None)
Quarter: 2009Q1

REPORT INFORMATION
  Report Type: 
  Country: None (occurrence: None)
  Receive Date: 20090205
  Receipt Date: 20090127
  Transmission Date: 20090719
  Serious: Yes (Hospitalization)
  Sender: FDA-Public Use
  Company Number: PHHY2009DK03428

PATIENT
  Sex: Female

DRUGS (2)
  1. EXFORGE [Suspect]
     Dosage: 5/80 MG
  2. ZESTORETIC [Concomitant]
     Indication: HYPERTENSION
     Dosage: 20/12.5 MG

REACTIONS (5)
  - BLOOD POTASSIUM INCREASED [None]
  - BLOOD SODIUM DECREASED [None]
  - MALAISE [None]
  - NAUSEA [None]
  - PALLOR [None]
